FAERS Safety Report 10888599 (Version 1)
Quarter: 2015Q1

REPORT INFORMATION
  Report Type: Report from Study
  Country: US (occurrence: US)
  Receive Date: 20150305
  Receipt Date: 20150305
  Transmission Date: 20150721
  Serious: No
  Sender: FDA-Public Use
  Company Number: US-SA-2014SA177320

PATIENT
  Age: 36 Year
  Sex: Female

DRUGS (1)
  1. CERDELGA [Suspect]
     Active Substance: ELIGLUSTAT
     Indication: GAUCHER^S DISEASE
     Route: 048
     Dates: start: 20141107, end: 20150224

REACTIONS (3)
  - Constipation [Unknown]
  - Contusion [Unknown]
  - Oesophagitis [Unknown]

NARRATIVE: CASE EVENT DATE: 2014
